FAERS Safety Report 9347819 (Version 1)
Quarter: 2013Q2

REPORT INFORMATION
  Report Type: Spontaneous
  Country: US (occurrence: US)
  Receive Date: 20130614
  Receipt Date: 20130614
  Transmission Date: 20140414
  Serious: No
  Sender: FDA-Public Use
  Company Number: US-PFIZER INC-2013177319

PATIENT
  Age: 43 Year
  Sex: Female

DRUGS (9)
  1. CHANTIX [Suspect]
     Dosage: UNK
  2. ASPIRIN [Suspect]
     Dosage: UNK
  3. DARVOCET [Suspect]
     Dosage: UNK
  4. IMITREX [Suspect]
     Dosage: UNK
  5. MOTRIN [Suspect]
     Dosage: UNK
  6. WELLBUTRIN [Suspect]
     Dosage: UNK
  7. TRAMADOL [Suspect]
     Dosage: UNK
  8. THEOLAIR [Suspect]
     Dosage: UNK
  9. DILAUDID [Suspect]
     Dosage: UNK

REACTIONS (1)
  - Drug hypersensitivity [Unknown]
